FAERS Safety Report 5890967-7 (Version None)
Quarter: 2008Q3

REPORT INFORMATION
  Report Type: 
  Country: None (occurrence: None)
  Receive Date: 20080922
  Receipt Date: 20080915
  Transmission Date: 20090109
  Serious: Yes (Other)
  Sender: FDA-Public Use
  Company Number: A0748488A

PATIENT

DRUGS (1)
  1. WELLBUTRIN XL [Suspect]
     Indication: DRUG USE FOR UNKNOWN INDICATION
     Route: 048

REACTIONS (7)
  - ANGER [None]
  - CRYING [None]
  - DROOLING [None]
  - HALLUCINATION, AUDITORY [None]
  - MORBID THOUGHTS [None]
  - MUSCLE TIGHTNESS [None]
  - RHINORRHOEA [None]
